FAERS Safety Report 14779772 (Version 1)
Quarter: 2018Q2

REPORT INFORMATION
  Report Type: Spontaneous
  Country: US (occurrence: US)
  Receive Date: 20180412
  Receipt Date: 20180412
  Transmission Date: 20180711
  Serious: Yes (Other)
  Sender: FDA-Public Use
  Company Number: None

PATIENT
  Age: 53 Year
  Sex: Male

DRUGS (2)
  1. GAMMAGARD [Suspect]
     Active Substance: HUMAN IMMUNOGLOBULIN G
     Indication: CHEMICAL BURN
     Dosage: ?          OTHER STRENGTH:5/50 GM/ML;OTHER FREQUENCY:DAILY FOR 2 DAYS E;?
     Route: 042
     Dates: start: 20180405
  2. GAMMAGARD [Suspect]
     Active Substance: HUMAN IMMUNOGLOBULIN G
     Indication: CHEMICAL BURN
     Dosage: ?          OTHER STRENGTH:30/300 GM/ML;OTHER FREQUENCY:DAILY FOR 2 DAYS E;?
     Route: 042
     Dates: start: 20180405

REACTIONS (5)
  - Chills [None]
  - Influenza like illness [None]
  - Pyrexia [None]
  - Fatigue [None]
  - Vomiting [None]

NARRATIVE: CASE EVENT DATE: 20180405
